FAERS Safety Report 12476872 (Version 1)
Quarter: 2016Q2

REPORT INFORMATION
  Report Type: Spontaneous
  Country: US (occurrence: US)
  Receive Date: 20160617
  Receipt Date: 20160617
  Transmission Date: 20160815
  Serious: Yes (Hospitalization)
  Sender: FDA-Public Use
  Company Number: US-DSJP-DSU-2016-120661

PATIENT

DRUGS (2)
  1. BENICAR [Suspect]
     Active Substance: OLMESARTAN MEDOXOMIL
     Indication: PRODUCT USED FOR UNKNOWN INDICATION
     Dosage: UNK
     Dates: start: 20051030
  2. BENICAR HCT [Suspect]
     Active Substance: HYDROCHLOROTHIAZIDE\OLMESARTAN MEDOXOMIL
     Dosage: UNK
     Dates: start: 20051030

REACTIONS (7)
  - Decreased appetite [Unknown]
  - Duodenitis [Unknown]
  - Gastritis [Unknown]
  - Weight decreased [Unknown]
  - Fatigue [Unknown]
  - Diarrhoea [Unknown]
  - Abdominal pain [Unknown]
